FAERS Safety Report 13180929 (Version 1)
Quarter: 2017Q1

REPORT INFORMATION
  Report Type: Spontaneous
  Country: US (occurrence: US)
  Receive Date: 20170202
  Receipt Date: 20170202
  Transmission Date: 20170428
  Serious: No
  Sender: FDA-Public Use
  Company Number: US-SMITH AND NEPHEW, INC-2016SMT00655

PATIENT
  Sex: Male
  Weight: 102.49 kg

DRUGS (15)
  1. METFORMIN [Concomitant]
     Active Substance: METFORMIN HYDROCHLORIDE
     Dosage: 750 MG, 2X/DAY
  2. LISINOPRIL. [Concomitant]
     Active Substance: LISINOPRIL
     Dosage: 10 MG, 1X/DAY
  3. METOPROLOL ER [Concomitant]
     Active Substance: METOPROLOL SUCCINATE
     Dosage: 100 MG, 1X/DAY
  4. CARTIA XT [Concomitant]
     Active Substance: DILTIAZEM HYDROCHLORIDE
     Dosage: 180 MG, 1X/DAY
  5. SUPER B COMPLEX [Concomitant]
     Active Substance: CYANOCOBALAMIN\DEXPANTHENOL\NIACINAMIDE\PYRIDOXINE HYDROCHLORIDE\RIBOFLAVIN 5^-PHOSPHATE SODIUM\THIAMINE HYDROCHLORIDE\VITAMIN B COMPLEX
     Dosage: UNK, 1X/DAY
  6. ELIQUIS [Concomitant]
     Active Substance: APIXABAN
     Dosage: 5 MG, 2X/DAY
  7. REGRANEX [Suspect]
     Active Substance: BECAPLERMIN
     Indication: ULCER
     Dosage: UNK, 1X/DAY
     Route: 061
     Dates: start: 20160702
  8. KLOR-CON [Concomitant]
     Active Substance: POTASSIUM CHLORIDE
     Dosage: 20 MEQ, 1X/DAY
  9. JANUVIA [Concomitant]
     Active Substance: SITAGLIPTIN PHOSPHATE
     Dosage: 100 MG, 1X/DAY
  10. NITROSTAT [Concomitant]
     Active Substance: NITROGLYCERIN
  11. SPIRIVA [Concomitant]
     Active Substance: TIOTROPIUM BROMIDE MONOHYDRATE
     Dosage: 18 ?G, 1X/DAY
  12. ALBUTEROL. [Concomitant]
     Active Substance: ALBUTEROL
     Dosage: UNK, AS NEEDED
  13. HYDROCHLOROTHIAZIDE. [Concomitant]
     Active Substance: HYDROCHLOROTHIAZIDE
     Dosage: 12.5 MG, 1X/DAY
  14. MEN?S 50 MULTI-VITAMIN [Concomitant]
     Dosage: UNK, 1X/DAY
  15. ATORVASTATIN [Concomitant]
     Active Substance: ATORVASTATIN
     Dosage: 10 MG, 1X/DAY

REACTIONS (1)
  - Angiogram [Unknown]
